FAERS Safety Report 7149120-1 (Version None)
Quarter: 2010Q4

REPORT INFORMATION
  Report Type: 
  Country: None (occurrence: None)
  Receive Date: 20101209
  Receipt Date: 20101130
  Transmission Date: 20110411
  Serious: Yes (Other)
  Sender: FDA-Public Use
  Company Number: DE-ASTRAZENECA-2010SE57026

PATIENT
  Age: 62 Year
  Sex: Female

DRUGS (1)
  1. FASLODEX [Suspect]
     Route: 030
     Dates: start: 20100101

REACTIONS (4)
  - AGGRESSION [None]
  - COLD SWEAT [None]
  - DYSPNOEA [None]
  - TACHYCARDIA [None]
